FAERS Safety Report 21706210 (Version 1)
Quarter: 2022Q4

REPORT INFORMATION
  Report Type: Spontaneous
  Country: FR (occurrence: FR)
  Receive Date: 20221209
  Receipt Date: 20221209
  Transmission Date: 20230113
  Serious: Yes (Other)
  Sender: FDA-Public Use
  Company Number: None

PATIENT
  Age: 43 Year
  Sex: Male

DRUGS (4)
  1. ALPRAZOLAM [Suspect]
     Active Substance: ALPRAZOLAM
     Indication: Product used for unknown indication
     Dosage: UNK, DEPUIS 3 MOIS CONSOMME 6CP DE 5 MG PAR JOUR (30MG/J)
     Route: 048
     Dates: start: 2017
  2. HEROIN [Suspect]
     Active Substance: DIAMORPHINE
     Indication: Product used for unknown indication
     Dosage: UNK, 1 A 2G PAR SEMAINE SUR UNE JOURNEE
     Route: 045
     Dates: start: 2016
  3. DAFALGAN CODEINE [Suspect]
     Active Substance: ACETAMINOPHEN\CODEINE PHOSPHATE
     Indication: Product used for unknown indication
     Dosage: 16 DOSAGE FORM, QD (16 CP PAR JOUR)
     Route: 048
  4. COCAINE [Concomitant]
     Active Substance: COCAINE
     Indication: Product used for unknown indication
     Dosage: UNK, 2 A 3G PENDANT 2-3 JOUR TOUS LES MOIS
     Route: 045

REACTIONS (2)
  - Drug dependence [Recovering/Resolving]
  - Drug abuse [Not Recovered/Not Resolved]
